FAERS Safety Report 19785089 (Version 1)
Quarter: 2021Q3

REPORT INFORMATION
  Report Type: Spontaneous
  Country: US (occurrence: US)
  Receive Date: 20210903
  Receipt Date: 20210903
  Transmission Date: 20211014
  Serious: No
  Sender: FDA-Public Use
  Company Number: None

PATIENT
  Age: 61 Year
  Sex: Female
  Weight: 59.85 kg

DRUGS (5)
  1. ERGOCALCIFEROL 1.25MG [Concomitant]
     Active Substance: ERGOCALCIFEROL
  2. VERZENIO [Suspect]
     Active Substance: ABEMACICLIB
     Indication: BREAST CANCER
     Route: 048
     Dates: start: 20210821
  3. XGEVA [Concomitant]
     Active Substance: DENOSUMAB
  4. FASLODEX [Concomitant]
     Active Substance: FULVESTRANT
  5. LISINOPRIL 10MG [Concomitant]
     Active Substance: LISINOPRIL

REACTIONS (1)
  - Flatulence [None]

NARRATIVE: CASE EVENT DATE: 20210902
